FAERS Safety Report 15871278 (Version 3)
Quarter: 2019Q1

REPORT INFORMATION
  Report Type: Report from Study
  Country: US (occurrence: US)
  Receive Date: 20190126
  Receipt Date: 20190326
  Transmission Date: 20190417
  Serious: No
  Sender: FDA-Public Use
  Company Number: PHEH2019US003744

PATIENT
  Age: 57 Year
  Sex: Female

DRUGS (1)
  1. ENTRESTO [Suspect]
     Active Substance: SACUBITRIL\VALSARTAN
     Indication: CARDIAC FAILURE
     Dosage: 1 DF (SACUBITRIL 24 MG/ VALSARTAN 26 MG), BID
     Route: 048
     Dates: start: 20160919

REACTIONS (7)
  - Swelling face [Unknown]
  - Head discomfort [Unknown]
  - Headache [Unknown]
  - Fatigue [Unknown]
  - Apathy [Unknown]
  - Head injury [Unknown]
  - Weight abnormal [Unknown]

NARRATIVE: CASE EVENT DATE: 20160919
